FAERS Safety Report 5727792-3 (Version None)
Quarter: 2008Q2

REPORT INFORMATION
  Report Type: 
  Country: None (occurrence: None)
  Receive Date: 20080505
  Receipt Date: 20080425
  Transmission Date: 20081010
  Serious: Yes (Other)
  Sender: FDA-Public Use
  Company Number: US-PFIZER INC-2008014189

PATIENT
  Sex: Female

DRUGS (11)
  1. LIPITOR [Suspect]
     Indication: HYPERLIPIDAEMIA
  2. NAPROSYN [Concomitant]
     Dosage: TEXT:250
  3. METHADONE HCL [Concomitant]
  4. LYRICA [Concomitant]
  5. REGLAN [Concomitant]
  6. MIRALAX [Concomitant]
  7. TRILEPTAL [Concomitant]
  8. OXYCODONE HCL [Concomitant]
     Dosage: TEXT:10/3 MG
  9. SEROQUEL [Concomitant]
     Dosage: TEXT:400
  10. KLONOPIN [Concomitant]
  11. FLEXERIL [Concomitant]
     Dosage: TEXT:10

REACTIONS (1)
  - NEURODEGENERATIVE DISORDER [None]
